FAERS Safety Report 8245183-0 (Version None)
Quarter: 2012Q1

REPORT INFORMATION
  Report Type: 
  Country: None (occurrence: None)
  Receive Date: 20120329
  Receipt Date: 20120325
  Transmission Date: 20120608
  Serious: No
  Sender: FDA-Public Use
  Company Number: US-BAYER-2012-030602

PATIENT

DRUGS (2)
  1. ALEVE (CAPLET) [Suspect]
     Indication: HEADACHE
     Dosage: 5 DF, UNK
     Route: 048
  2. BENADRYL [Concomitant]
     Indication: MULTIPLE ALLERGIES

REACTIONS (1)
  - NO ADVERSE EVENT [None]
